FAERS Safety Report 9288769 (Version 1)
Quarter: 2013Q2

REPORT INFORMATION
  Report Type: Spontaneous
  Country: JP (occurrence: JP)
  Receive Date: 20130514
  Receipt Date: 20130514
  Transmission Date: 20140414
  Serious: Yes (Other)
  Sender: FDA-Public Use
  Company Number: JP-PFIZER INC-2013144045

PATIENT
  Age: 59 Year
  Sex: Male

DRUGS (10)
  1. SEIBULE [Suspect]
     Indication: DIABETES MELLITUS
     Dosage: 150 MG, UNK
     Route: 048
     Dates: start: 20130404, end: 20130408
  2. SEIBULE [Suspect]
     Dosage: 150MG, UNK
     Dates: start: 20130412, end: 20130422
  3. DIOVAN [Concomitant]
  4. FLOMOX [Concomitant]
  5. TAMSULOSIN HYDROCHLORIDE [Concomitant]
  6. BIOTIN [Concomitant]
  7. MIYA BM [Concomitant]
  8. CINAL [Concomitant]
  9. FAMOTIDINE [Concomitant]
  10. LOXOPROFEN SODIUM [Concomitant]

REACTIONS (2)
  - Vomiting [Recovered/Resolved]
  - Diarrhoea [Recovered/Resolved]
